FAERS Safety Report 5966848-7 (Version None)
Quarter: 2008Q4

REPORT INFORMATION
  Report Type: 
  Country: None (occurrence: None)
  Receive Date: 20081125
  Receipt Date: 20081115
  Transmission Date: 20090506
  Serious: Yes (Other)
  Sender: FDA-Public Use
  Company Number: BR-GENENTECH-271867

PATIENT
  Age: 36 Year
  Sex: Female

DRUGS (4)
  1. XOLAIR [Suspect]
     Indication: ASTHMA
     Dosage: UNK
     Route: 058
     Dates: start: 20060101, end: 20080301
  2. XOLAIR [Suspect]
     Dosage: 225 MG, Q15D
     Route: 058
     Dates: start: 20081107
  3. FLUTICASONE PROPIONATE/SALMETEROL XINAFOATE [Concomitant]
     Indication: DRUG USE FOR UNKNOWN INDICATION
     Dosage: UNK
     Dates: start: 20081001
  4. FENOTEROL [Concomitant]
     Indication: DRUG USE FOR UNKNOWN INDICATION
     Dosage: UNK
     Dates: start: 20060101

REACTIONS (3)
  - APPLICATION SITE ERYTHEMA [None]
  - BLOOD IMMUNOGLOBULIN E INCREASED [None]
  - INJECTION SITE SWELLING [None]
